FAERS Safety Report 15833769 (Version 1)
Quarter: 2019Q1

REPORT INFORMATION
  Report Type: Spontaneous
  Country: AU (occurrence: AU)
  Receive Date: 20190116
  Receipt Date: 20190116
  Transmission Date: 20190417
  Serious: Yes (Other)
  Sender: FDA-Public Use
  Company Number: AU-SEATTLE GENETICS-2019SGN00019

PATIENT
  Age: 24 Year
  Sex: Male

DRUGS (5)
  1. CARMUSTINE. [Suspect]
     Active Substance: CARMUSTINE
  2. MELPHALAN. [Suspect]
     Active Substance: MELPHALAN
  3. ADCETRIS [Suspect]
     Active Substance: BRENTUXIMAB VEDOTIN
     Indication: HODGKIN^S DISEASE
     Route: 065
  4. ETOPOSIDE. [Suspect]
     Active Substance: ETOPOSIDE
  5. CYTARABINE. [Suspect]
     Active Substance: CYTARABINE

REACTIONS (3)
  - Malignant pleural effusion [Unknown]
  - Hodgkin^s disease [Unknown]
  - Lymphadenopathy [Unknown]
